FAERS Safety Report 8598096-9 (Version None)
Quarter: 2012Q3

REPORT INFORMATION
  Report Type: 
  Country: None (occurrence: None)
  Receive Date: 20120816
  Receipt Date: 20120809
  Transmission Date: 20120928
  Serious: Yes (Hospitalization)
  Sender: FDA-Public Use
  Company Number: JP-B.I. PHARMACEUTICALS,INC./RIDGEFIELD-2012-EU-03766GD

PATIENT
  Age: 63 Year
  Sex: Male

DRUGS (2)
  1. DIPYRIDAMOLE [Suspect]
     Indication: PERIPHERAL ARTERIAL OCCLUSIVE DISEASE
  2. WARFARIN POTASSIUM [Suspect]
     Indication: PERIPHERAL ARTERIAL OCCLUSIVE DISEASE

REACTIONS (4)
  - BILE DUCT STONE [None]
  - ABDOMINAL PAIN UPPER [None]
  - CHOLANGITIS [None]
  - PYREXIA [None]
